FAERS Safety Report 20673313 (Version 1)
Quarter: 2022Q2

REPORT INFORMATION
  Report Type: Spontaneous
  Country: US (occurrence: None)
  Receive Date: 20220403
  Receipt Date: 20220403
  Transmission Date: 20220721
  Serious: Yes (Hospitalization)
  Sender: FDA-Public Use
  Company Number: None

PATIENT
  Age: 72 Year
  Sex: Male

DRUGS (1)
  1. PIPERACILLIN SODIUM\TAZOBACTAM SODIUM [Suspect]
     Active Substance: PIPERACILLIN SODIUM\TAZOBACTAM SODIUM
     Indication: Upper respiratory tract infection
     Dates: start: 20220101, end: 20220130

REACTIONS (3)
  - Anaphylactic reaction [None]
  - Cardio-respiratory arrest [None]
  - Pneumonia [None]

NARRATIVE: CASE EVENT DATE: 20220105
